FAERS Safety Report 17999215 (Version 1)
Quarter: 2020Q3

REPORT INFORMATION
  Report Type: Spontaneous
  Country: US (occurrence: US)
  Receive Date: 20200709
  Receipt Date: 20200709
  Transmission Date: 20201103
  Serious: No
  Sender: FDA-Public Use
  Company Number: US-ULTRAGENYX PHARMACEUTICAL INC.-US-UGNX-19-00194

PATIENT
  Sex: Female
  Weight: 15.89 kg

DRUGS (14)
  1. MEPSEVII [Suspect]
     Active Substance: VESTRONIDASE ALFA-VJBK
     Indication: MUCOPOLYSACCHARIDOSIS VII
     Route: 042
     Dates: start: 20180118
  2. PREDNISONE. [Concomitant]
     Active Substance: PREDNISONE
  3. MUPIROCIN. [Concomitant]
     Active Substance: MUPIROCIN
  4. CETIRIZINE [Concomitant]
     Active Substance: CETIRIZINE HYDROCHLORIDE
  5. LIDOCAINE/PRILOCAINE [Concomitant]
     Active Substance: LIDOCAINE\PRILOCAINE
  6. PULMICORT TURBUHALER [Concomitant]
     Active Substance: BUDESONIDE
  7. PROVENTIL [Concomitant]
     Active Substance: ALBUTEROL
  8. EPINEPHRINE. [Concomitant]
     Active Substance: EPINEPHRINE
  9. FLOVENT HFA [Concomitant]
     Active Substance: FLUTICASONE PROPIONATE
  10. LORATADINE. [Concomitant]
     Active Substance: LORATADINE
  11. L?M?X [Concomitant]
  12. TRIAMCINOLONE [Concomitant]
     Active Substance: TRIAMCINOLONE
  13. HYDROXYZINE [Concomitant]
     Active Substance: HYDROXYZINE HYDROCHLORIDE
  14. DIPHENHYDRAMINE. [Concomitant]
     Active Substance: DIPHENHYDRAMINE

REACTIONS (1)
  - Skin infection [Unknown]
